FAERS Safety Report 15296049 (Version 9)
Quarter: 2021Q2

REPORT INFORMATION
  Report Type: Spontaneous
  Country: US (occurrence: US)
  Receive Date: 20180820
  Receipt Date: 20210614
  Transmission Date: 20210716
  Serious: No
  Sender: FDA-Public Use
  Company Number: US-PFIZER INC-2018332834

PATIENT
  Age: 57 Year
  Sex: Female
  Weight: 94.33 kg

DRUGS (6)
  1. ASA [Concomitant]
     Active Substance: ASPIRIN
     Dosage: UNK
  2. LYRICA [Suspect]
     Active Substance: PREGABALIN
     Indication: FIBROMYALGIA
     Dosage: 300 MG,TWO TIMES A DAY (3 IN THE MORNING AND 3 AT NIGHT)
     Dates: start: 20170619
  3. SERTRALINE HCL [Concomitant]
     Active Substance: SERTRALINE HYDROCHLORIDE
     Dosage: 100 MG, ONCE A DAY
     Dates: start: 201706
  4. TRAMADOL. [Concomitant]
     Active Substance: TRAMADOL
     Dosage: UNK, 4X/DAY(1?2 TABLET 4 TIMES)
     Dates: start: 201805
  5. LYRICA [Suspect]
     Active Substance: PREGABALIN
     Dosage: 300 MG, TWO TIMES A DAY (1 IN THE MORNING AND 1 AT NIGHT)
     Route: 048
     Dates: start: 202010
  6. IBUPROFEN. [Concomitant]
     Active Substance: IBUPROFEN
     Dosage: 800 MG, AS NEEDED(BUT I USED TO TAKE TABLET EVERY NIGHT)
     Dates: start: 198201

REACTIONS (10)
  - Depression [Unknown]
  - Off label use [Unknown]
  - Drug withdrawal syndrome [Recovered/Resolved]
  - Abdominal pain upper [Recovered/Resolved]
  - Eye discharge [Unknown]
  - Nausea [Recovered/Resolved]
  - Poor quality sleep [Unknown]
  - Feeling abnormal [Unknown]
  - Insomnia [Unknown]
  - Pain [Recovered/Resolved]

NARRATIVE: CASE EVENT DATE: 20170619
